FAERS Safety Report 13578658 (Version 2)
Quarter: 2020Q1

REPORT INFORMATION
  Report Type: Spontaneous
  Country: US (occurrence: US)
  Receive Date: 20170524
  Receipt Date: 20200320
  Transmission Date: 20200409
  Serious: Yes (Hospitalization, Disabling, Other)
  Sender: FDA-Public Use
  Company Number: US-009507513-1705USA011765

PATIENT
  Sex: Male
  Weight: 114.74 kg

DRUGS (6)
  1. METOPROLOL. [Concomitant]
     Active Substance: METOPROLOL
     Indication: SUPRAVENTRICULAR TACHYCARDIA
     Dosage: 100 MILLIGRAM, QD
  2. PRILOSEC [Concomitant]
     Active Substance: OMEPRAZOLE MAGNESIUM
     Indication: GASTROOESOPHAGEAL REFLUX PROPHYLAXIS
     Dosage: UNK
  3. VITAMIN D (UNSPECIFIED) [Concomitant]
     Active Substance: VITAMIN D NOS
     Indication: VITAMIN D DEFICIENCY
     Dosage: 3000 INTERNATIONAL UNIT, QD
  4. CRESTOR [Concomitant]
     Active Substance: ROSUVASTATIN CALCIUM
     Indication: ISCHAEMIC HEART DISEASE PROPHYLAXIS
     Dosage: UNK
  5. JANUVIA [Suspect]
     Active Substance: SITAGLIPTIN PHOSPHATE
     Indication: PRODUCT USED FOR UNKNOWN INDICATION
     Dosage: 100 MILLIGRAM, QD
     Route: 048
     Dates: start: 20100121
  6. BASAGLAR [Concomitant]
     Active Substance: INSULIN GLARGINE
     Indication: TYPE 2 DIABETES MELLITUS
     Dosage: UNK

REACTIONS (29)
  - Memory impairment [Unknown]
  - Toe amputation [Unknown]
  - Fatigue [Unknown]
  - Adenocarcinoma pancreas [Not Recovered/Not Resolved]
  - Polycythaemia [Unknown]
  - Hyperlipidaemia [Unknown]
  - Abdominal operation [Unknown]
  - Mobility decreased [Unknown]
  - Hepatic steatosis [Unknown]
  - Sleep apnoea syndrome [Unknown]
  - Abscess rupture [Unknown]
  - Neurosurgery [Unknown]
  - Post-traumatic stress disorder [Unknown]
  - Feeling abnormal [Unknown]
  - Jaundice [Recovered/Resolved]
  - Malignant biliary obstruction [Unknown]
  - Atelectasis [Unknown]
  - Arteriosclerosis [Unknown]
  - Wound [Unknown]
  - Psychological trauma [Unknown]
  - Depression [Unknown]
  - Splenomegaly [Unknown]
  - Septic shock [Unknown]
  - Sexual dysfunction [Unknown]
  - Mental impairment [Unknown]
  - Exercise lack of [Unknown]
  - Obesity [Not Recovered/Not Resolved]
  - Diabetic neuropathy [Not Recovered/Not Resolved]
  - Basophilia [Unknown]

NARRATIVE: CASE EVENT DATE: 20130605
